FAERS Safety Report 8436533-0 (Version None)
Quarter: 2012Q2

REPORT INFORMATION
  Report Type: 
  Country: None (occurrence: None)
  Receive Date: 20120614
  Receipt Date: 20120608
  Transmission Date: 20120825
  Serious: Yes (Other)
  Sender: FDA-Public Use
  Company Number: FR-GLAXOSMITHKLINE-B0806651A

PATIENT
  Sex: Female

DRUGS (6)
  1. DEPAKOTE [Concomitant]
     Route: 065
  2. PAROXETINE HCL [Suspect]
     Indication: PRODUCT USED FOR UNKNOWN INDICATION
     Dosage: 10MG PER DAY
     Route: 048
     Dates: start: 20120419, end: 20120503
  3. IXEL [Concomitant]
     Route: 065
  4. ASPIRIN [Concomitant]
     Route: 065
  5. NEXIUM [Concomitant]
     Route: 065
  6. LEVOTHYROXINE SODIUM [Concomitant]
     Route: 065

REACTIONS (1)
  - THROMBOCYTOPENIA [None]
